FAERS Safety Report 8023862-8 (Version None)
Quarter: 2012Q1

REPORT INFORMATION
  Report Type: 
  Country: None (occurrence: None)
  Receive Date: 20120105
  Receipt Date: 20111223
  Transmission Date: 20120608
  Serious: Yes (Congenital Anomaly, Other)
  Sender: FDA-Public Use
  Company Number: DE-RANBAXY-2011RR-51598

PATIENT
  Sex: Female
  Weight: 2.32 kg

DRUGS (2)
  1. RISPERIDONE [Suspect]
     Dosage: 4 MG/DAY
     Route: 064
     Dates: start: 20100211, end: 20100829
  2. ABILIFY [Concomitant]
     Dosage: 15 MG/DAY
     Route: 064
     Dates: start: 20091231, end: 20100211

REACTIONS (3)
  - CONGENITAL HYDRONEPHROSIS [None]
  - CONGENITAL URETERIC ANOMALY [None]
  - TRANSIENT TACHYPNOEA OF THE NEWBORN [None]
